FAERS Safety Report 10210709 (Version 1)
Quarter: 2014Q2

REPORT INFORMATION
  Report Type: Spontaneous
  Country: US (occurrence: None)
  Receive Date: 20140529
  Receipt Date: 20140529
  Transmission Date: 20141212
  Serious: Yes (Other)
  Sender: FDA-Public Use
  Company Number: None

PATIENT
  Age: 68 Year
  Sex: Male

DRUGS (4)
  1. LAMOTRIGINE [Suspect]
  2. ABILIFY [Concomitant]
  3. RISPERIDONE [Concomitant]
  4. GABAPENTIN [Concomitant]

REACTIONS (4)
  - Treatment failure [None]
  - Product substitution issue [None]
  - Confusional state [None]
  - Mood altered [None]
